FAERS Safety Report 5626202-4 (Version None)
Quarter: 2008Q1

REPORT INFORMATION
  Report Type: 
  Country: None (occurrence: None)
  Receive Date: 20080214
  Receipt Date: 20080211
  Transmission Date: 20080703
  Serious: Yes (Other)
  Sender: FDA-Public Use
  Company Number: A0708678A

PATIENT
  Sex: Female

DRUGS (2)
  1. COREG [Suspect]
     Indication: HYPERTENSION
     Dosage: 12.5MG TWICE PER DAY
     Route: 048
     Dates: start: 20020101, end: 20080101
  2. NO CONCURRENT MEDICATION [Concomitant]

REACTIONS (2)
  - BLINDNESS [None]
  - CHROMATOPSIA [None]
